FAERS Safety Report 9375260 (Version 2)
Quarter: 2013Q3

REPORT INFORMATION
  Report Type: Spontaneous
  Country: DE (occurrence: DE)
  Receive Date: 20130628
  Receipt Date: 20130711
  Transmission Date: 20140515
  Serious: Yes (Hospitalization, Disabling)
  Sender: FDA-Public Use
  Company Number: DE-JNJFOC-20130615499

PATIENT
  Age: 93 Year
  Sex: Female
  Weight: 61 kg

DRUGS (4)
  1. XARELTO [Suspect]
     Indication: PRODUCT USED FOR UNKNOWN INDICATION
     Route: 048
  2. FUROSEMID [Concomitant]
     Route: 065
  3. DIGIMERCK [Concomitant]
     Route: 065
  4. MORPHINE SULFATE [Concomitant]
     Route: 065

REACTIONS (3)
  - Cerebral haemorrhage [Recovered/Resolved]
  - Headache [Recovered/Resolved]
  - Nausea [Recovered/Resolved]
